FAERS Safety Report 9112834 (Version 1)
Quarter: 2013Q1

REPORT INFORMATION
  Report Type: Spontaneous
  Country: AU (occurrence: AU)
  Receive Date: 20130211
  Receipt Date: 20130211
  Transmission Date: 20140127
  Serious: Yes (Other)
  Sender: FDA-Public Use
  Company Number: AU-ROCHE-1189809

PATIENT
  Age: 63 Year
  Sex: Female

DRUGS (4)
  1. BEVACIZUMAB [Suspect]
     Indication: COLON NEOPLASM
     Route: 065
  2. FLUOROURACIL [Concomitant]
     Indication: COLON NEOPLASM
  3. FOLINIC ACID [Concomitant]
     Indication: COLON NEOPLASM
  4. OXALIPLATIN [Concomitant]
     Indication: COLON NEOPLASM

REACTIONS (1)
  - Disease progression [Unknown]
